FAERS Safety Report 13205055 (Version 2)
Quarter: 2017Q1

REPORT INFORMATION
  Report Type: Report from Study
  Country: US (occurrence: US)
  Receive Date: 20170209
  Receipt Date: 20170216
  Transmission Date: 20170428
  Serious: Yes (Hospitalization, Other)
  Sender: FDA-Public Use
  Company Number: US-GILEAD-2017-0256977

PATIENT
  Age: 44 Year
  Sex: Female

DRUGS (10)
  1. LIPITOR [Concomitant]
     Active Substance: ATORVASTATIN CALCIUM
  2. ETHINYLESTRADIOL W/LEVONORGESTREL [Concomitant]
     Active Substance: ETHINYL ESTRADIOL\LEVONORGESTREL
  3. ALBUTEROL                          /00139501/ [Concomitant]
     Active Substance: ALBUTEROL
  4. SPIRONOLACTONE. [Concomitant]
     Active Substance: SPIRONOLACTONE
  5. METOLAZONE. [Concomitant]
     Active Substance: METOLAZONE
  6. AMBRISENTAN [Suspect]
     Active Substance: AMBRISENTAN
     Indication: PULMONARY HYPERTENSION
     Dosage: 10 MG, QD
     Route: 048
  7. FUROSEMIDE. [Concomitant]
     Active Substance: FUROSEMIDE
  8. COLCHICINE. [Concomitant]
     Active Substance: COLCHICINE
  9. FLUTICASONE. [Concomitant]
     Active Substance: FLUTICASONE
  10. AMBRISENTAN [Suspect]
     Active Substance: AMBRISENTAN
     Indication: CASTLEMAN^S DISEASE

REACTIONS (1)
  - Pneumonia [Recovered/Resolved]
